FAERS Safety Report 6229925-1 (Version None)
Quarter: 2009Q2

REPORT INFORMATION
  Report Type: 
  Country: None (occurrence: None)
  Receive Date: 20090615
  Receipt Date: 20090608
  Transmission Date: 20091009
  Serious: Yes (Death, Hospitalization, Other)
  Sender: FDA-Public Use
  Company Number: GB-ELI_LILLY_AND_COMPANY-GB200905002027

PATIENT
  Sex: Male
  Weight: 118.2 kg

DRUGS (6)
  1. BYETTA [Suspect]
     Dosage: 5 UG, 2/D
     Route: 058
     Dates: start: 20080513
  2. BYETTA [Suspect]
     Dosage: 10 UG, 2/D
     Route: 058
     Dates: start: 20080612, end: 20090109
  3. METFORMIN HYDROCHLORIDE [Concomitant]
     Dosage: 3 D/F, OTHER A DAY
     Route: 065
  4. GLICLAZIDE [Concomitant]
     Dosage: 320 D/F, OTHER PER  DAY
  5. SIMVASTATIN [Concomitant]
     Dosage: UNK, UNKNOWN
     Route: 065
  6. BISOPROLOL [Concomitant]
     Dosage: UNK, UNKNOWN
     Route: 065

REACTIONS (10)
  - DEHYDRATION [None]
  - FLUID IMBALANCE [None]
  - INTERVERTEBRAL DISC PROTRUSION [None]
  - PARAPLEGIA [None]
  - PNEUMONIA [None]
  - RENAL FAILURE [None]
  - RENAL IMPAIRMENT [None]
  - SEPSIS [None]
  - SPINAL CORD COMPRESSION [None]
  - WEIGHT DECREASED [None]
